FAERS Safety Report 10192380 (Version 3)
Quarter: 2014Q2

REPORT INFORMATION
  Report Type: Spontaneous
  Country: US (occurrence: US)
  Receive Date: 20140523
  Receipt Date: 20140603
  Transmission Date: 20141212
  Serious: Yes (Other)
  Sender: FDA-Public Use
  Company Number: US-TEVA-483120USA

PATIENT
  Sex: Female

DRUGS (2)
  1. METFORMIN [Suspect]
     Indication: DIABETES MELLITUS
     Dates: start: 201401
  2. GABAPENTIN [Concomitant]

REACTIONS (6)
  - Cerebrovascular accident [Unknown]
  - Multiple sclerosis [Unknown]
  - Blood glucose increased [Unknown]
  - Bladder neck suspension [Unknown]
  - Cystitis [Unknown]
  - Drug ineffective [Unknown]
